FAERS Safety Report 5934778-2 (Version None)
Quarter: 2008Q4

REPORT INFORMATION
  Report Type: 
  Country: None (occurrence: None)
  Receive Date: 20081010
  Receipt Date: 20080502
  Transmission Date: 20090506
  Serious: Yes (Other)
  Sender: FDA-Public Use
  Company Number: 2008SP008186

PATIENT
  Age: 45 Year
  Sex: Female

DRUGS (1)
  1. TEMODAR [Suspect]
     Indication: ASTROCYTOMA
     Dosage: 250 MG QD PO
     Route: 048

REACTIONS (2)
  - OVERDOSE [None]
  - PANCYTOPENIA [None]
